FAERS Safety Report 24958645 (Version 1)
Quarter: 2025Q1

REPORT INFORMATION
  Report Type: Spontaneous
  Country: FR (occurrence: FR)
  Receive Date: 20250212
  Receipt Date: 20250212
  Transmission Date: 20250409
  Serious: Yes (Other)
  Sender: MERCK KGAA
  Company Number: FR-Merck Healthcare KGaA-2025006599

PATIENT
  Sex: Male

DRUGS (1)
  1. EUTHYROX [Suspect]
     Active Substance: LEVOTHYROXINE SODIUM
     Indication: Product used for unknown indication

REACTIONS (8)
  - Weight increased [Unknown]
  - Diabetes mellitus [Recovering/Resolving]
  - Fatigue [Unknown]
  - Onychoclasis [Unknown]
  - Dizziness [Unknown]
  - Depression [Unknown]
  - Alopecia [Unknown]
  - Vomiting [Unknown]
